FAERS Safety Report 12738564 (Version 3)
Quarter: 2018Q2

REPORT INFORMATION
  Report Type: Spontaneous
  Country: US (occurrence: US)
  Receive Date: 20160912
  Receipt Date: 20180515
  Transmission Date: 20180711
  Serious: No
  Sender: FDA-Public Use
  Company Number: US-SA-2016SA141202

PATIENT
  Age: 80 Year
  Sex: Female

DRUGS (5)
  1. LANTUS SOLOSTAR [Concomitant]
     Active Substance: INSULIN GLARGINE
     Dosage: DOSE:26 UNIT(S)
  2. SOLOSTAR [Concomitant]
     Active Substance: DEVICE
     Dosage: DOSE:26 UNIT(S)
  3. TOUJEO [Suspect]
     Active Substance: INSULIN GLARGINE
     Indication: TYPE 2 DIABETES MELLITUS
     Dosage: DOSE:60 UNIT(S)
     Dates: start: 201607
  4. GLYBURIDE. [Concomitant]
     Active Substance: GLYBURIDE
  5. SOLOSTAR [Concomitant]
     Active Substance: DEVICE
     Dosage: DOSE:60 UNIT(S)
     Dates: start: 201607

REACTIONS (1)
  - Blood glucose abnormal [Unknown]
